FAERS Safety Report 23536030 (Version 1)
Quarter: 2024Q1

REPORT INFORMATION
  Report Type: Spontaneous
  Country: ES (occurrence: ES)
  Receive Date: 20240219
  Receipt Date: 20240219
  Transmission Date: 20240410
  Serious: Yes (Other)
  Sender: FDA-Public Use
  Company Number: ES-ELI_LILLY_AND_COMPANY-ES202306005015

PATIENT

DRUGS (6)
  1. GOSERELIN [Suspect]
     Active Substance: GOSERELIN
     Indication: Breast cancer metastatic
     Dosage: UNK UNK, UNKNOWN
     Route: 058
  2. ZOLADEX [Suspect]
     Active Substance: GOSERELIN ACETATE
     Indication: Breast cancer metastatic
     Dosage: UNK
     Route: 065
  3. ABEMACICLIB [Suspect]
     Active Substance: ABEMACICLIB
     Indication: Breast cancer metastatic
     Dosage: 100 MG, UNKNOWN100.0MG UNKNOWN
     Route: 065
     Dates: start: 20230705
  4. ABEMACICLIB [Suspect]
     Active Substance: ABEMACICLIB
     Dosage: 150 MG, UNKNOWN150.0MG UNKNOWN
     Route: 065
     Dates: start: 20230517
  5. ABEMACICLIB [Suspect]
     Active Substance: ABEMACICLIB
     Dosage: 100 MG, UNKNOWN100.0MG UNKNOWN
     Route: 065
     Dates: start: 20230705
  6. LETROZOLE [Concomitant]
     Active Substance: LETROZOLE
     Indication: Breast cancer metastatic
     Dosage: UNK UNK, UNKNOWN
     Route: 065

REACTIONS (15)
  - Neutropenia [Recovered/Resolved]
  - Anaemia [Recovering/Resolving]
  - Discomfort [Recovering/Resolving]
  - Haematoma [Recovered/Resolved]
  - Pain in extremity [Recovering/Resolving]
  - Skin disorder [Recovered/Resolved]
  - Hepatic pain [Recovering/Resolving]
  - Platelet count decreased [Recovering/Resolving]
  - Blood urine present [Recovering/Resolving]
  - Gamma-glutamyltransferase increased [Unknown]
  - Diarrhoea [Recovering/Resolving]
  - Fatigue [Recovering/Resolving]
  - Arthralgia [Recovering/Resolving]
  - Hypotension [Recovered/Resolved]
  - Pyrexia [Recovered/Resolved]

NARRATIVE: CASE EVENT DATE: 20230607
